FAERS Safety Report 25386760 (Version 1)
Quarter: 2025Q2

REPORT INFORMATION
  Report Type: Spontaneous
  Country: US (occurrence: US)
  Receive Date: 20250602
  Receipt Date: 20250602
  Transmission Date: 20250716
  Serious: No
  Sender: SANOFI AVENTIS
  Company Number: US-SA-SAC20221124001080

PATIENT
  Sex: Male
  Weight: 53 kg

DRUGS (2)
  1. CEREZYME [Suspect]
     Active Substance: IMIGLUCERASE
     Indication: Gaucher^s disease
     Dosage: 400 U, QOW
     Route: 042
     Dates: start: 201608
  2. CEREZYME [Suspect]
     Active Substance: IMIGLUCERASE
     Dosage: 4800 IU QW
     Dates: start: 202201

REACTIONS (1)
  - Weight increased [Unknown]
